FAERS Safety Report 24188443 (Version 1)
Quarter: 2024Q3

REPORT INFORMATION
  Report Type: Report from Study
  Country: US (occurrence: None)
  Receive Date: 20240808
  Receipt Date: 20240808
  Transmission Date: 20241017
  Serious: Yes (Other)
  Sender: ASTRAZENECA
  Company Number: 2023A027348

PATIENT
  Sex: Male

DRUGS (2)
  1. CALQUENCE [Suspect]
     Active Substance: ACALABRUTINIB
     Indication: Chronic lymphocytic leukaemia
     Route: 048
  2. NAPHCON [Concomitant]
     Active Substance: NAPHAZOLINE HYDROCHLORIDE

REACTIONS (3)
  - Prostatic specific antigen increased [Unknown]
  - Hypersensitivity [Unknown]
  - Nephrolithiasis [Unknown]
